FAERS Safety Report 12850898 (Version 5)
Quarter: 2017Q1

REPORT INFORMATION
  Report Type: Report from Study
  Country: US (occurrence: US)
  Receive Date: 20161015
  Receipt Date: 20170210
  Transmission Date: 20170428
  Serious: Yes (Other)
  Sender: FDA-Public Use
  Company Number: US-AMGEN-USASP2016138853

PATIENT
  Age: 55 Year
  Sex: Female

DRUGS (3)
  1. ENBREL [Suspect]
     Active Substance: ETANERCEPT
     Indication: RHEUMATOID ARTHRITIS
     Dosage: 50 MG, QWK
     Route: 065
     Dates: start: 20131215
  2. ENBREL [Suspect]
     Active Substance: ETANERCEPT
     Dosage: UNK
     Route: 065
  3. ENBREL [Suspect]
     Active Substance: ETANERCEPT
     Dosage: UNK, QWK
     Route: 065
     Dates: start: 2016

REACTIONS (9)
  - Scapula fracture [Unknown]
  - Fibromyalgia [Unknown]
  - Arthritis [Unknown]
  - Asthenia [Unknown]
  - Pathological fracture [Unknown]
  - Fall [Unknown]
  - Drug effect decreased [Unknown]
  - Drug dose omission [Unknown]
  - Surgery [Unknown]

NARRATIVE: CASE EVENT DATE: 2016
